FAERS Safety Report 19303420 (Version 1)
Quarter: 2021Q2

REPORT INFORMATION
  Report Type: Spontaneous
  Country: GB (occurrence: GB)
  Receive Date: 20210525
  Receipt Date: 20210525
  Transmission Date: 20210717
  Serious: Yes (Other)
  Sender: FDA-Public Use
  Company Number: GB-PFIZER INC-2021555859

PATIENT
  Age: 56 Year
  Sex: Female

DRUGS (3)
  1. ESTRADIOL. [Suspect]
     Active Substance: ESTRADIOL
     Indication: OSTEOPOROSIS PROPHYLAXIS
  2. FEMSEVEN CONTI [Suspect]
     Active Substance: ESTRADIOL HEMIHYDRATE\LEVONORGESTREL
  3. EVOREL CONTI [Suspect]
     Active Substance: ESTRADIOL\NORETHINDRONE ACETATE
     Indication: OSTEOPOROSIS PROPHYLAXIS

REACTIONS (7)
  - Headache [Unknown]
  - Fatigue [Unknown]
  - Mood swings [Unknown]
  - Off label use [Unknown]
  - Skin disorder [Unknown]
  - Somnolence [Unknown]
  - Drug ineffective [Unknown]
